FAERS Safety Report 20066751 (Version 1)
Quarter: 2021Q4

REPORT INFORMATION
  Report Type: Spontaneous
  Country: US (occurrence: US)
  Receive Date: 20211115
  Receipt Date: 20211115
  Transmission Date: 20220304
  Serious: Yes (Hospitalization)
  Sender: FDA-Public Use
  Company Number: US-AstraZeneca-2020SE18333

PATIENT
  Sex: Male

DRUGS (2)
  1. SYNAGIS [Suspect]
     Active Substance: PALIVIZUMAB
     Indication: Infant
     Route: 030
     Dates: start: 20200121
  2. SYNAGIS [Suspect]
     Active Substance: PALIVIZUMAB
     Indication: Dysphagia

REACTIONS (1)
  - Respiratory syncytial virus infection [Unknown]
